FAERS Safety Report 24630544 (Version 2)
Quarter: 2024Q4

REPORT INFORMATION
  Report Type: Report from Study
  Country: US (occurrence: US)
  Receive Date: 20241118
  Receipt Date: 20241209
  Transmission Date: 20250115
  Serious: Yes (Other)
  Sender: BAYER HEALTHCARE PHARMACEUTICALS INC.
  Company Number: US-BAYER-2024A131942

PATIENT
  Age: 73 Year
  Sex: Female

DRUGS (1)
  1. ADEMPAS [Suspect]
     Active Substance: RIOCIGUAT
     Indication: Pulmonary arterial hypertension
     Dosage: 0.5 MG, TID
     Route: 048
     Dates: start: 202408

REACTIONS (40)
  - Loss of consciousness [None]
  - Lower limb fracture [None]
  - Hypertension [None]
  - Hypotension [Not Recovered/Not Resolved]
  - Product dose omission issue [None]
  - Headache [Not Recovered/Not Resolved]
  - Dyspepsia [Not Recovered/Not Resolved]
  - Dyspnoea [Not Recovered/Not Resolved]
  - Dizziness [Not Recovered/Not Resolved]
  - Gastrooesophageal reflux disease [None]
  - Constipation [Not Recovered/Not Resolved]
  - Insomnia [None]
  - Presyncope [None]
  - Product dose omission issue [None]
  - Alopecia [Not Recovered/Not Resolved]
  - Hypersomnia [None]
  - Food refusal [None]
  - Fatigue [None]
  - Balance disorder [None]
  - Peripheral swelling [Recovering/Resolving]
  - Abdominal distension [Recovering/Resolving]
  - Oedema [None]
  - Back pain [None]
  - Varicose vein [None]
  - Vein discolouration [None]
  - Erythema [None]
  - Weight increased [Recovering/Resolving]
  - Dizziness [None]
  - Illness [None]
  - Fluid retention [None]
  - Arthralgia [None]
  - Joint swelling [Recovering/Resolving]
  - Pain in extremity [None]
  - Fatigue [None]
  - Bedridden [None]
  - Decreased activity [None]
  - Dyspnoea [None]
  - Localised oedema [None]
  - Oedema peripheral [None]
  - Weight decreased [None]

NARRATIVE: CASE EVENT DATE: 20240101
